FAERS Safety Report 9394856 (Version 2)
Quarter: 2013Q3

REPORT INFORMATION
  Report Type: Spontaneous
  Country: CN (occurrence: CN)
  Receive Date: 20130711
  Receipt Date: 20130718
  Transmission Date: 20140515
  Serious: Yes (Other)
  Sender: FDA-Public Use
  Company Number: CN-009507513-1307CHN004361

PATIENT
  Age: 72 Year
  Sex: Female
  Weight: 68 kg

DRUGS (1)
  1. TIENAM (IV) [Suspect]
     Indication: PNEUMONIA
     Dosage: 1 G, Q12H
     Route: 042
     Dates: start: 20111115, end: 20111129

REACTIONS (3)
  - Epilepsy [Recovered/Resolved]
  - Coma [Unknown]
  - Somnolence [Unknown]
